FAERS Safety Report 10080639 (Version 2)
Quarter: 2014Q2

REPORT INFORMATION
  Report Type: Spontaneous
  Country: ES (occurrence: ES)
  Receive Date: 20140416
  Receipt Date: 20140416
  Transmission Date: 20141212
  Serious: Yes (Other)
  Sender: FDA-Public Use
  Company Number: ES-AMGEN-ESPSP2014020962

PATIENT
  Age: 87 Year
  Sex: Female
  Weight: 68 kg

DRUGS (14)
  1. ARANESP [Suspect]
     Indication: ANAEMIA
     Dosage: 60 MCG, QMO
     Route: 058
     Dates: start: 2012
  2. FUROSEMIDE [Concomitant]
     Indication: HYPERTENSION
     Route: 048
  3. IDAPREX COMBI [Concomitant]
     Indication: HYPERTENSION
  4. LOVASTATIN [Concomitant]
     Indication: HYPERCHOLESTEROLAEMIA
     Dosage: 20 MG, QD
  5. ALOPURINOL [Concomitant]
     Indication: BLOOD URIC ACID INCREASED
     Dosage: 100 MG, QD
  6. CARDURAN [Concomitant]
     Indication: HYPERTENSION
     Dosage: 4 MG, QD
     Route: 048
  7. UNIKET [Concomitant]
     Indication: HYPERTENSION
     Dosage: 20 MG, TID
     Route: 048
     Dates: start: 201312
  8. IDAPTAN [Concomitant]
     Indication: TINNITUS
     Dosage: 20 MG, UNK
     Route: 048
  9. ROCALTROL [Concomitant]
     Dosage: 0.25 MG, 3 TIMES/WK
     Route: 048
  10. BECOZYME C [Concomitant]
     Dosage: UNK UNK, QD
     Route: 048
  11. PARACETAMOL [Concomitant]
     Indication: PAIN IN EXTREMITY
     Dosage: 1 G, TID
     Route: 048
  12. PARACETAMOL [Concomitant]
     Indication: MUSCLE SPASMS
  13. INSULATARD                         /00646002/ [Concomitant]
     Indication: TYPE 1 DIABETES MELLITUS
     Dosage: UNK UNK, BID
     Route: 058
  14. ACFOL [Concomitant]
     Dosage: 5 MG, QD
     Route: 048

REACTIONS (4)
  - Hypertension [Recovered/Resolved]
  - Breast cancer [Recovered/Resolved]
  - Herpes zoster [Recovering/Resolving]
  - Blood glucose abnormal [Unknown]
